FAERS Safety Report 8226757-X (Version None)
Quarter: 2012Q1

REPORT INFORMATION
  Report Type: 
  Country: None (occurrence: None)
  Receive Date: 20120322
  Receipt Date: 20120313
  Transmission Date: 20120608
  Serious: Yes (Hospitalization, Other)
  Sender: FDA-Public Use
  Company Number: US-BAYER-2011-075642

PATIENT
  Age: 21 Year
  Sex: Female
  Weight: 54.422 kg

DRUGS (3)
  1. NAPROXEN [Concomitant]
     Dosage: 550 MG, UNK
     Dates: start: 20081112
  2. YAZ [Suspect]
     Dosage: UNK
     Route: 048
     Dates: start: 20070101, end: 20081101
  3. ADDERALL XR 10 [Concomitant]
     Indication: ATTENTION DEFICIT/HYPERACTIVITY DISORDER
     Dosage: 20 MG, QD
     Dates: start: 20060101

REACTIONS (6)
  - PULMONARY EMBOLISM [None]
  - ATELECTASIS [None]
  - DEEP VEIN THROMBOSIS [None]
  - PULMONARY HAEMORRHAGE [None]
  - PLEURAL EFFUSION [None]
  - CHEST PAIN [None]
